FAERS Safety Report 5108998-3 (Version None)
Quarter: 2006Q3

REPORT INFORMATION
  Report Type: 
  Country: None (occurrence: None)
  Receive Date: 20060918
  Receipt Date: 20060906
  Transmission Date: 20061208
  Serious: Yes (Other)
  Sender: FDA-Public Use
  Company Number: 2006110567

PATIENT
  Sex: Female

DRUGS (6)
  1. AROMASIN [Suspect]
     Indication: BREAST CANCER
     Dosage: 25 MG (25 MG, 1 IN 1 D), ORAL
     Route: 048
     Dates: start: 20060601
  2. ALDAZIDA (HYDROCHLOROTHIAZIDE, SPIRONOLACTONE) [Concomitant]
  3. XENICAL [Concomitant]
  4. XANTINON B12 (CHOLINE CHLORIDE, LIVER EXTRACT, METHIONINE, VITAMIN B12 [Concomitant]
  5. GLUCOVANCE [Concomitant]
  6. BROMAZEPAM [Concomitant]

REACTIONS (2)
  - CONDITION AGGRAVATED [None]
  - DIABETES MELLITUS [None]
